FAERS Safety Report 12830248 (Version 1)
Quarter: 2016Q4

REPORT INFORMATION
  Report Type: Spontaneous
  Country: US (occurrence: US)
  Receive Date: 20161007
  Receipt Date: 20161007
  Transmission Date: 20170207
  Serious: No
  Sender: FDA-Public Use
  Company Number: US-SA-2016SA160563

PATIENT
  Age: 54 Year
  Sex: Female

DRUGS (10)
  1. ONFI [Concomitant]
     Active Substance: CLOBAZAM
  2. VITAMIN C [Concomitant]
     Active Substance: ASCORBIC ACID
  3. OXYCODONE [Concomitant]
     Active Substance: OXYCODONE
  4. TOPAMAX [Concomitant]
     Active Substance: TOPIRAMATE
  5. AUBAGIO [Suspect]
     Active Substance: TERIFLUNOMIDE
     Indication: MULTIPLE SCLEROSIS
     Route: 048
     Dates: start: 20140603
  6. LEXAPRO [Concomitant]
     Active Substance: ESCITALOPRAM OXALATE
  7. MIRAPEX [Concomitant]
     Active Substance: PRAMIPEXOLE DIHYDROCHLORIDE
  8. KEPPRA [Concomitant]
     Active Substance: LEVETIRACETAM
  9. GRALISE [Concomitant]
     Active Substance: GABAPENTIN
  10. MOBIC [Concomitant]
     Active Substance: MELOXICAM

REACTIONS (5)
  - Alopecia [Unknown]
  - Depression [Unknown]
  - Balance disorder [Unknown]
  - Pain [Unknown]
  - Fatigue [Unknown]

NARRATIVE: CASE EVENT DATE: 201604
